FAERS Safety Report 15690087 (Version 2)
Quarter: 2018Q4

REPORT INFORMATION
  Report Type: Spontaneous
  Country: US (occurrence: US)
  Receive Date: 20181205
  Receipt Date: 20181231
  Transmission Date: 20190205
  Serious: Yes (Death, Hospitalization, Other)
  Sender: FDA-Public Use
  Company Number: US-PFIZER INC-2018323545

PATIENT
  Age: 95 Year
  Sex: Female

DRUGS (36)
  1. ALBUTEROL [SALBUTAMOL] [Concomitant]
     Active Substance: ALBUTEROL
     Dosage: UNK UNK, 4X/DAY (2.5 MG= 3 ML Q6HR)
  2. COLACE [Concomitant]
     Active Substance: DOCUSATE SODIUM
     Dosage: 100 MG, 2X/DAY
     Route: 048
  3. HALDOL [Concomitant]
     Active Substance: HALOPERIDOL
     Indication: SLEEP DISORDER
     Dosage: 0.5 MG, AS NEEDED (TWO TIMES A DAY, PRN)
     Route: 048
  4. LISPRO INSULIN [Concomitant]
     Active Substance: INSULIN LISPRO
     Dosage: UNK UNK, 3X/DAY (TIDWM)
     Route: 058
  5. PANTOPRAZOLE [Concomitant]
     Active Substance: PANTOPRAZOLE
     Dosage: 40 MG, DAILY
     Route: 048
  6. ZOFRAN [ONDANSETRON HYDROCHLORIDE] [Concomitant]
     Dosage: UNK UNK, AS NEEDED (2 MG= 1 ML)
     Route: 040
  7. REVATIO [Suspect]
     Active Substance: SILDENAFIL CITRATE
     Indication: PULMONARY HYPERTENSION
     Dosage: 40 MG, DAILY
     Route: 048
     Dates: start: 20150730, end: 20181111
  8. GUAIFENESIN. [Concomitant]
     Active Substance: GUAIFENESIN
     Dosage: 600 MG, 3X/DAY
     Route: 048
  9. LEVAQUIN [Concomitant]
     Active Substance: LEVOFLOXACIN
     Dosage: UNK UNK, 1X/DAY
     Route: 040
  10. MAGNESIUM OXIDE. [Concomitant]
     Active Substance: MAGNESIUM OXIDE
     Dosage: 400 MG, DAILY
     Route: 048
  11. TOBI [Concomitant]
     Active Substance: TOBRAMYCIN
     Dosage: 300 MG, 2X/DAY
  12. VITAMIN B COMPLEX W VITAMIN C + FOLIC ACID [Concomitant]
     Dosage: 1 DF, 2X/DAY
     Route: 048
  13. CYANOCOBALAMIN. [Concomitant]
     Active Substance: CYANOCOBALAMIN
     Dosage: 1000 UG/ML, 1X/DAY (1000 MCG/ML INJECTABLE SOLUTION, 1000 MCG= 1 ML)
     Route: 058
  14. DIGOXIN. [Concomitant]
     Active Substance: DIGOXIN
     Dosage: 125 UG, DAILY (125 MCG (0.125 MG) ORAL TABLET, 125 MCG= 1 TAB(S))
     Route: 048
  15. LEVEMIR [Concomitant]
     Active Substance: INSULIN DETEMIR
     Dosage: UNK UNK, DAILY
     Route: 058
  16. THIAMINE. [Concomitant]
     Active Substance: THIAMINE
     Dosage: 100 MG, 2X/DAY
     Route: 048
  17. TYLENOL [CHLORPHENAMINE MALEATE;DEXTROMETHORPHAN HYDROBROMIDE;PARACETA [Concomitant]
     Dosage: 325 MG, AS NEEDED (325 MG= 1 TAB(S), ORAL, Q6HR)
     Route: 048
  18. FOLIC ACID. [Concomitant]
     Active Substance: FOLIC ACID
     Dosage: 1 MG, 2X/DAY
     Route: 048
  19. GLUCOSE [Concomitant]
     Active Substance: DEXTROSE
     Dosage: UNK , AS NEEDED (Q15MIN, PRN)
     Route: 040
  20. HALDOL [Concomitant]
     Active Substance: HALOPERIDOL
     Indication: AGITATION
     Dosage: 2 MG, 1X/DAY, (AT BEDTIME)
     Route: 048
  21. LOVENOX [Concomitant]
     Active Substance: ENOXAPARIN SODIUM
     Dosage: UNK UNK, DAILY
     Route: 058
  22. MAALOX [ALGELDRATE;MAGNESIUM HYDROXIDE] [Concomitant]
     Dosage: 30 ML, AS NEEDED (Q2HR, PRN)
     Route: 048
  23. METFORMIN [Concomitant]
     Active Substance: METFORMIN HYDROCHLORIDE
     Dosage: 500 MG, DAILY
     Route: 048
  24. AMLODIPINE [Concomitant]
     Active Substance: AMLODIPINE BESYLATE
     Dosage: 5 MG, DAILY
     Route: 048
  25. HYDRALAZINE [Concomitant]
     Active Substance: HYDRALAZINE HYDROCHLORIDE
     Dosage: UNK UNK, AS NEEDED (Q 15 MIN, PRN)
     Route: 040
  26. PEPTO-BISMOL [Concomitant]
     Active Substance: BISMUTH SUBSALICYLATE
     Dosage: UNK UNK, AS NEEDED (524 MG= 30 ML, FOUR TIMES A DAY, PRN)
     Route: 048
  27. MIRALAX [Concomitant]
     Active Substance: POLYETHYLENE GLYCOL 3350
     Dosage: UNK, 2X/DAY (1 PACKET(S))
     Route: 048
  28. SILDENAFIL. [Concomitant]
     Active Substance: SILDENAFIL
     Dosage: 40 MG, 3X/DAY
     Route: 048
  29. IPRATROPIUM [Concomitant]
     Active Substance: IPRATROPIUM
     Dosage: UNK UNK, 4X/DAY (0.5 MG= 2.5 ML)
  30. NORMAL SALINE [Concomitant]
     Active Substance: SODIUM CHLORIDE
     Dosage: UNK UNK, AS NEEDED (Q1MIN, PRN)
     Route: 040
  31. OMEPRAZOLE. [Concomitant]
     Active Substance: OMEPRAZOLE
     Dosage: 20 MG, 2X/DAY
     Route: 048
  32. REVATIO [Suspect]
     Active Substance: SILDENAFIL CITRATE
     Dosage: 40 MG, 3X/DAY
     Route: 048
  33. GLUCOSE [Concomitant]
     Active Substance: DEXTROSE
     Dosage: UNK , AS NEEDED (Q15MIN, PRN)
     Route: 040
  34. NORMAL SALINE [Concomitant]
     Active Substance: SODIUM CHLORIDE
     Dosage: UNK, 3X/DAY
     Route: 040
  35. NYSTATIN. [Concomitant]
     Active Substance: NYSTATIN
     Dosage: UNK UNK, 4X/DAY (100,000 UNITS/ML ORAL SUSPENSION, 500000 UNIT(S)= 5 ML)
     Route: 048
  36. PREDNISONE. [Concomitant]
     Active Substance: PREDNISONE
     Dosage: 10 MG, 2X/DAY (10 MG= 2 TAB(S)
     Route: 048

REACTIONS (6)
  - Condition aggravated [Fatal]
  - Multiple organ dysfunction syndrome [Unknown]
  - Product use issue [Unknown]
  - Pulmonary hypertension [Fatal]
  - Influenza [Unknown]
  - Cardio-respiratory arrest [Fatal]
